FAERS Safety Report 7267771-0 (Version None)
Quarter: 2011Q1

REPORT INFORMATION
  Report Type: 
  Country: None (occurrence: None)
  Receive Date: 20110201
  Receipt Date: 20110126
  Transmission Date: 20110831
  Serious: Yes (Hospitalization)
  Sender: FDA-Public Use
  Company Number: A0873808A

PATIENT
  Age: 51 Year
  Sex: Female

DRUGS (3)
  1. AVANDAMET [Suspect]
     Dosage: 4MG PER DAY
     Route: 048
     Dates: start: 20061201, end: 20090601
  2. AVANDIA [Suspect]
     Indication: DIABETES MELLITUS
     Route: 048
     Dates: start: 20060601, end: 20061101
  3. AVANDARYL [Suspect]
     Route: 048
     Dates: start: 19990501, end: 20050101

REACTIONS (1)
  - MYOCARDIAL INFARCTION [None]
